FAERS Safety Report 4437196-1 (Version None)
Quarter: 2004Q3

REPORT INFORMATION
  Report Type: 
  Country: None (occurrence: None)
  Receive Date: 20040726
  Receipt Date: 20040303
  Transmission Date: 20050211
  Serious: No
  Sender: FDA-Public Use
  Company Number: USA040360909

PATIENT
  Age: 42 Year
  Sex: Female
  Weight: 72 kg

DRUGS (11)
  1. FORTEO [Suspect]
     Indication: OSTEOPOROSIS
     Dates: start: 20040210
  2. EVISTA [Concomitant]
  3. POTASSIUM [Concomitant]
  4. ASPIRIN [Concomitant]
  5. BUMEX [Concomitant]
  6. HYDROXYZINE [Concomitant]
  7. FOLIC ACID [Concomitant]
  8. NEXIUM [Concomitant]
  9. CENESTIN (ESTROGENS CONJUGATED) [Concomitant]
  10. PROVERA [Concomitant]
  11. PREDNISONE [Concomitant]

REACTIONS (3)
  - ABDOMINAL PAIN [None]
  - CONSTIPATION [None]
  - MUSCLE CRAMP [None]
